FAERS Safety Report 17236531 (Version 1)
Quarter: 2020Q1

REPORT INFORMATION
  Report Type: Report from Study
  Country: GB (occurrence: GB)
  Receive Date: 20200106
  Receipt Date: 20200106
  Transmission Date: 20200409
  Serious: Yes (Other)
  Sender: FDA-Public Use
  Company Number: NVSC2019GB084502

PATIENT
  Sex: Female

DRUGS (1)
  1. OMNITROPE [Suspect]
     Active Substance: SOMATROPIN
     Indication: PRODUCT USED FOR UNKNOWN INDICATION
     Dosage: 0.5 MG, QD
     Route: 058

REACTIONS (6)
  - Pituitary tumour [Unknown]
  - Asthenia [Unknown]
  - Tremor [Unknown]
  - Headache [Unknown]
  - Hemiplegic migraine [Unknown]
  - Malaise [Unknown]
